FAERS Safety Report 8966428 (Version 1)
Quarter: 2012Q4

REPORT INFORMATION
  Report Type: 
  Country: DE (occurrence: DE)
  Receive Date: 20121217
  Receipt Date: 20121217
  Transmission Date: 20130627
  Serious: Yes (Death, Other)
  Sender: FDA-Public Use
  Company Number: DE-ELI_LILLY_AND_COMPANY-DE201212001514

PATIENT
  Sex: Female

DRUGS (2)
  1. FLUCTIN [Suspect]
     Indication: ANXIETY DISORDER
     Dosage: 30 mg, qd
     Route: 064
  2. FLUCTIN [Suspect]
     Dosage: 20 mg, qd
     Route: 064

REACTIONS (3)
  - Foetal death [Fatal]
  - Foetal exposure during pregnancy [Unknown]
  - Off label use [Unknown]
